FAERS Safety Report 9565140 (Version 2)
Quarter: 2013Q4

REPORT INFORMATION
  Report Type: Spontaneous
  Country: US (occurrence: US)
  Receive Date: 20130930
  Receipt Date: 20131125
  Transmission Date: 20140711
  Serious: Yes (Other)
  Sender: FDA-Public Use
  Company Number: US-PFIZER INC-2013278237

PATIENT
  Age: 45 Year
  Sex: Male

DRUGS (1)
  1. MORPHINE SULFATE [Suspect]
     Indication: BACK PAIN
     Dosage: 60 MG, 4X/DAY
     Route: 048
     Dates: start: 2005

REACTIONS (2)
  - Intervertebral disc protrusion [Unknown]
  - Pruritus [Recovered/Resolved]
